FAERS Safety Report 7527012-3 (Version None)
Quarter: 2011Q2

REPORT INFORMATION
  Report Type: 
  Country: None (occurrence: None)
  Receive Date: 20110606
  Receipt Date: 20110525
  Transmission Date: 20111010
  Serious: Yes (Hospitalization)
  Sender: FDA-Public Use
  Company Number: DE-BAYER-2011-045125

PATIENT
  Age: 55 Year
  Sex: Female
  Weight: 98.866 kg

DRUGS (7)
  1. THEOPHYLLINE [Concomitant]
     Dosage: 2X300
     Route: 048
  2. OMEPRAZOLE [Concomitant]
     Route: 048
  3. SPIRIVA [Concomitant]
     Dosage: 1X1
  4. SYMBICORT [Concomitant]
     Route: 048
  5. ACETYLCYSTEINE [Concomitant]
     Route: 048
  6. AVELOX [Suspect]
     Indication: BRONCHITIS
     Dosage: 400 MG, UNK
     Route: 048
     Dates: start: 20101111, end: 20101111
  7. LEVEMIR [Concomitant]
     Route: 048

REACTIONS (4)
  - DYSPNOEA [None]
  - RASH GENERALISED [None]
  - STRIDOR [None]
  - HYPERSENSITIVITY [None]
